FAERS Safety Report 18151199 (Version 1)
Quarter: 2020Q3

REPORT INFORMATION
  Report Type: Spontaneous
  Country: US (occurrence: US)
  Receive Date: 20200814
  Receipt Date: 20200814
  Transmission Date: 20201103
  Serious: Yes (Hospitalization)
  Sender: FDA-Public Use
  Company Number: None

PATIENT
  Age: 53 Year
  Sex: Male
  Weight: 103 kg

DRUGS (1)
  1. JARDIANCE [Suspect]
     Active Substance: EMPAGLIFLOZIN
     Indication: TYPE 2 DIABETES MELLITUS
     Route: 048
     Dates: start: 20200807, end: 20200813

REACTIONS (8)
  - Anion gap increased [None]
  - Vomiting [None]
  - Abdominal pain [None]
  - Diabetic ketoacidosis [None]
  - Urine ketone body present [None]
  - Euglycaemic diabetic ketoacidosis [None]
  - Dyspnoea [None]
  - Carbon dioxide [None]

NARRATIVE: CASE EVENT DATE: 20200813
